FAERS Safety Report 7087003-6 (Version None)
Quarter: 2010Q4

REPORT INFORMATION
  Report Type: 
  Country: None (occurrence: None)
  Receive Date: 20101106
  Receipt Date: 20100920
  Transmission Date: 20110411
  Serious: No
  Sender: FDA-Public Use
  Company Number: US-WYE-H17623110

PATIENT
  Sex: Female

DRUGS (7)
  1. RAPAMUNE [Interacting]
     Indication: IMMUNOSUPPRESSANT DRUG THERAPY
     Dosage: UNSPEC
     Dates: start: 20100701
  2. AMBIEN [Concomitant]
  3. LOTREL [Suspect]
     Indication: HYPERTENSION
     Dosage: INCREASED TWICE IN 2010 DUE TO INCREASING BLOOD PRESSURE
  4. CELLCEPT [Interacting]
     Indication: IMMUNOSUPPRESSANT DRUG THERAPY
     Dosage: UNSPEC
     Dates: start: 20100701
  5. ZOLOFT [Interacting]
     Indication: ANXIETY
     Route: 048
     Dates: start: 20100701
  6. ZOLOFT [Interacting]
     Indication: DEPRESSION
  7. DEXLANSOPRAZOLE [Concomitant]

REACTIONS (5)
  - BLOOD PRESSURE INCREASED [None]
  - CONDITION AGGRAVATED [None]
  - DRUG INTERACTION [None]
  - FATIGUE [None]
  - SOMNOLENCE [None]
